FAERS Safety Report 4474973-5 (Version None)
Quarter: 2004Q3

REPORT INFORMATION
  Report Type: 
  Country: None (occurrence: None)
  Receive Date: 20040923
  Receipt Date: 20040728
  Transmission Date: 20050211
  Serious: No
  Sender: FDA-Public Use
  Company Number: USA040671279

PATIENT
  Age: 75 Year
  Sex: Female

DRUGS (11)
  1. FORTEO [Suspect]
     Indication: OSTEOPOROSIS
     Dates: start: 20040621
  2. TRIAMTERENE AND HYDROCHLOROTHIAZIDE [Concomitant]
  3. SOTALOL HCL [Concomitant]
  4. LISINOPRIL [Concomitant]
  5. CARTIA XT [Concomitant]
  6. PREMARIN [Concomitant]
  7. HYTRIN [Concomitant]
  8. FOLIC ACID [Concomitant]
  9. ALPHAGAN P [Concomitant]
  10. XALATAN [Concomitant]
  11. WARFARIN SODIUM [Concomitant]

REACTIONS (4)
  - ARTHRALGIA [None]
  - INJECTION SITE HAEMORRHAGE [None]
  - MUSCLE CRAMP [None]
  - PAIN IN EXTREMITY [None]
